FAERS Safety Report 4696804-0 (Version None)
Quarter: 2005Q2

REPORT INFORMATION
  Report Type: 
  Country: None (occurrence: None)
  Receive Date: 20050622
  Receipt Date: 20050615
  Transmission Date: 20051028
  Serious: Yes (Life-Threatening, Hospitalization, Other)
  Sender: FDA-Public Use
  Company Number: US-BRISTOL-MYERS SQUIBB COMPANY-13005046

PATIENT
  Age: 46 Year
  Sex: Male
  Weight: 85 kg

DRUGS (8)
  1. ERBITUX [Suspect]
     Indication: RECTAL CANCER METASTATIC
     Route: 042
     Dates: start: 20050606, end: 20050606
  2. BENADRYL [Concomitant]
     Indication: PREMEDICATION
     Route: 042
     Dates: start: 20050606, end: 20050606
  3. IRINOTECAN [Concomitant]
     Dates: start: 20050531, end: 20050531
  4. COUMADIN [Concomitant]
  5. POTASSIUM CHLORIDE [Concomitant]
  6. ATENOLOL [Concomitant]
  7. LOMOTIL [Concomitant]
  8. VICODIN [Concomitant]

REACTIONS (3)
  - DYSPNOEA [None]
  - MYOCARDIAL INFARCTION [None]
  - NAUSEA [None]
